FAERS Safety Report 5443222-3 (Version None)
Quarter: 2007Q3

REPORT INFORMATION
  Report Type: 
  Country: None (occurrence: None)
  Receive Date: 20070830
  Receipt Date: 20070815
  Transmission Date: 20080115
  Serious: Yes (Hospitalization, Other)
  Sender: FDA-Public Use
  Company Number: 2007US-09169

PATIENT
  Age: 69 Year
  Sex: Female

DRUGS (16)
  1. ISOPTIN SR [Suspect]
     Indication: DRUG USE FOR UNKNOWN INDICATION
     Dosage: 80 MG, TID, ORAL
     Route: 048
  2. SIMVASTATIN [Suspect]
     Indication: HYPERCHOLESTEROLAEMIA
     Dosage: 20 MG, QD, ORAL
     Route: 048
     Dates: start: 19970421, end: 19970516
  3. BUMETANIDE [Concomitant]
  4. DIGOXIN [Concomitant]
  5. CARBASALATE CALCIUM [Concomitant]
  6. CACIT BRUISTABLET [Concomitant]
  7. PREDNISONE TAB [Concomitant]
  8. TEMAZEPAM [Concomitant]
  9. LOSEC [Concomitant]
  10. STANOZOLOL [Concomitant]
  11. COLECALCIFEROL [Concomitant]
  12. FUSIDIC ACID [Concomitant]
  13. E45 OINTMENT [Concomitant]
  14. PLANTAGO OVATA [Concomitant]
  15. CIPROFLOXACIN [Concomitant]
  16. DICLOFENAC [Concomitant]

REACTIONS (2)
  - DRUG INTERACTION [None]
  - RHABDOMYOLYSIS [None]
